FAERS Safety Report 6800447-X (Version None)
Quarter: 2010Q2

REPORT INFORMATION
  Report Type: 
  Country: None (occurrence: None)
  Receive Date: 20100629
  Receipt Date: 20100621
  Transmission Date: 20101027
  Serious: No
  Sender: FDA-Public Use
  Company Number: US-BIOGENIDEC-2010BI015183

PATIENT
  Sex: Female

DRUGS (1)
  1. TYSABRI [Suspect]
     Indication: MULTIPLE SCLEROSIS
     Route: 042
     Dates: start: 20100121

REACTIONS (8)
  - ARTHROPATHY [None]
  - DRUG INEFFECTIVE [None]
  - FALL [None]
  - GAIT DISTURBANCE [None]
  - MIGRAINE [None]
  - SEASONAL ALLERGY [None]
  - STRESS [None]
  - TREMOR [None]
